FAERS Safety Report 10301994 (Version 1)
Quarter: 2014Q3

REPORT INFORMATION
  Report Type: Spontaneous
  Country: US (occurrence: None)
  Receive Date: 20140709
  Receipt Date: 20140709
  Transmission Date: 20150326
  Serious: Yes (Other)
  Sender: FDA-Public Use
  Company Number: None

PATIENT
  Age: 61 Year
  Sex: Male
  Weight: 108.86 kg

DRUGS (9)
  1. VEMURAFENIB [Suspect]
     Active Substance: VEMURAFENIB
     Indication: METASTATIC MALIGNANT MELANOMA
     Route: 048
     Dates: start: 20140701, end: 20140708
  2. LEVOTHYROXINE [Concomitant]
     Active Substance: LEVOTHYROXINE
  3. ROTIGOTINE [Concomitant]
     Active Substance: ROTIGOTINE
  4. AMLODIPINE [Concomitant]
     Active Substance: AMLODIPINE BESYLATE
  5. HYDROCHLOROTHIAZIDE. [Concomitant]
     Active Substance: HYDROCHLOROTHIAZIDE
  6. OLMESARTAN [Concomitant]
     Active Substance: OLMESARTAN
  7. MVI [Concomitant]
     Active Substance: VITAMINS
  8. RASAGILINE [Concomitant]
     Active Substance: RASAGILINE
  9. COENZYME Q10 [Concomitant]
     Active Substance: UBIDECARENONE

REACTIONS (1)
  - Radiation skin injury [None]

NARRATIVE: CASE EVENT DATE: 20140703
